FAERS Safety Report 7391195 (Version 5)
Quarter: 2013Q2

REPORT INFORMATION
  Report Type: Spontaneous
  Country: US (occurrence: US)
  Receive Date: 20100518
  Receipt Date: 20130419
  Transmission Date: 20140414
  Serious: Yes (Hospitalization, Disabling, Other)
  Sender: FDA-Public Use
  Company Number: US-BAYER-201022369NA

PATIENT
  Age: 43 Year
  Sex: Female
  Weight: 72.56 kg

DRUGS (20)
  1. YAZ [Suspect]
     Dosage: UNK
     Route: 048
     Dates: start: 20061115, end: 20080510
  2. ALTACE [Concomitant]
     Indication: HYPERTENSION
     Dosage: UNK
     Dates: start: 2004, end: 2008
  3. PRO-AIR [Concomitant]
     Indication: ASTHMA
  4. ADVAIR [Concomitant]
     Indication: ASTHMA
  5. SINGULAIR [Concomitant]
     Indication: ASTHMA
     Dosage: UNK
     Dates: start: 2004
  6. SINGULAIR [Concomitant]
     Indication: MULTIPLE ALLERGIES
  7. XOPENEX [Concomitant]
     Indication: ASTHMA
  8. AVANDIA [Concomitant]
     Indication: DIABETES MELLITUS
     Dosage: UNK
     Dates: start: 2004, end: 2008
  9. MOTRIN [Concomitant]
     Indication: PAIN
     Dosage: UNK
     Dates: start: 200608
  10. PROTONIX [Concomitant]
     Indication: EROSIVE OESOPHAGITIS
     Dosage: UNK
     Dates: start: 200702, end: 200912
  11. APIDRA [Concomitant]
  12. BACLOFEN [Concomitant]
  13. DOSS [Concomitant]
  14. LEXAPRO [Concomitant]
  15. LANTUS [Concomitant]
  16. METFORMIN [Concomitant]
  17. METAMUCIL [Concomitant]
  18. ZOCOR [Concomitant]
  19. AMBIEN [Concomitant]
  20. MAGIC BULLET [Concomitant]

REACTIONS (11)
  - Cerebral artery thrombosis [Unknown]
  - Ischaemic cerebral infarction [None]
  - Deformity [None]
  - Injury [Unknown]
  - Headache [Unknown]
  - Hemiparesis [Unknown]
  - Aphasia [Unknown]
  - Hypoaesthesia [Unknown]
  - Gait disturbance [Unknown]
  - Depression [None]
  - Paraesthesia [Unknown]
